FAERS Safety Report 9506993 (Version 1)
Quarter: 2013Q3

REPORT INFORMATION
  Report Type: Spontaneous
  Country: RU (occurrence: RU)
  Receive Date: 20130909
  Receipt Date: 20130909
  Transmission Date: 20140515
  Serious: Yes (Other)
  Sender: FDA-Public Use
  Company Number: RU-TEVA-430290ISR

PATIENT
  Age: 20 Year
  Sex: 0

DRUGS (1)
  1. EQUORAL [Suspect]

REACTIONS (1)
  - Epilepsy [Unknown]
